FAERS Safety Report 6197382-X (Version None)
Quarter: 2009Q2

REPORT INFORMATION
  Report Type: 
  Country: None (occurrence: None)
  Receive Date: 20090521
  Receipt Date: 20090512
  Transmission Date: 20091009
  Serious: Yes (Other)
  Sender: FDA-Public Use
  Company Number: PHHY2009DE12291

PATIENT
  Sex: Male
  Weight: 78 kg

DRUGS (5)
  1. EXELON [Suspect]
     Indication: COGNITIVE DISORDER
     Dosage: 4.6 MG/24HOUR
     Route: 062
     Dates: start: 20081120, end: 20081128
  2. NEXIUM [Concomitant]
     Dosage: 1-0-0
     Route: 048
  3. DELIX PLUS [Concomitant]
     Dosage: 1-0-0
     Route: 048
  4. BISOPROLOL FUMARATE [Concomitant]
     Dosage: 1-0-0
     Route: 048
  5. NOVALGIN [Concomitant]
     Dosage: 20 DROPS ON A PRN BASIS
     Route: 048

REACTIONS (7)
  - ACTIVITIES OF DAILY LIVING IMPAIRED [None]
  - BRADYCARDIA [None]
  - DIZZINESS [None]
  - FALL [None]
  - GAIT DISTURBANCE [None]
  - GENERAL PHYSICAL HEALTH DETERIORATION [None]
  - TACHYCARDIA [None]
